FAERS Safety Report 7471043-9 (Version None)
Quarter: 2011Q2

REPORT INFORMATION
  Report Type: 
  Country: None (occurrence: None)
  Receive Date: 20110510
  Receipt Date: 20110505
  Transmission Date: 20111010
  Serious: No
  Sender: FDA-Public Use
  Company Number: US-PFIZER INC-2011097542

PATIENT
  Sex: Male
  Weight: 104 kg

DRUGS (4)
  1. PREVACID [Concomitant]
     Indication: GASTROOESOPHAGEAL REFLUX DISEASE
     Dosage: UNK
     Dates: start: 20110419
  2. PRISTIQ [Suspect]
     Indication: DEPRESSED MOOD
     Dosage: UNK, 1X/DAY
     Route: 048
     Dates: start: 20110419, end: 20110427
  3. PRISTIQ [Suspect]
  4. CLARINEX [Suspect]
     Indication: HYPERSENSITIVITY
     Dosage: 5 MG, 1X/DAY
     Route: 048
     Dates: start: 20110419, end: 20110505

REACTIONS (4)
  - BLOOD CHOLESTEROL INCREASED [None]
  - RASH [None]
  - HYPERSENSITIVITY [None]
  - BLOOD GLUCOSE INCREASED [None]
